FAERS Safety Report 4936136-6 (Version None)
Quarter: 2006Q1

REPORT INFORMATION
  Report Type: 
  Country: None (occurrence: None)
  Receive Date: 20060307
  Receipt Date: 20051107
  Transmission Date: 20060701
  Serious: No
  Sender: FDA-Public Use
  Company Number: US-GLAXOSMITHKLINE-A0581241A

PATIENT
  Age: 75 Year
  Sex: Female
  Weight: 63.6 kg

DRUGS (4)
  1. REQUIP [Suspect]
     Indication: RESTLESS LEGS SYNDROME
     Dosage: 1MG PER DAY
     Route: 048
     Dates: start: 20050613, end: 20051025
  2. PAXIL CR [Concomitant]
     Route: 048
     Dates: start: 20050926, end: 20051115
  3. NORVASC [Concomitant]
     Dosage: 2.5MG UNKNOWN
     Route: 048
     Dates: end: 20051015
  4. EVISTA [Concomitant]
     Route: 048
     Dates: end: 20051101

REACTIONS (1)
  - OEDEMA PERIPHERAL [None]
